FAERS Safety Report 4845542-X (Version None)
Quarter: 2005Q4

REPORT INFORMATION
  Report Type: 
  Country: None (occurrence: None)
  Receive Date: 20051201
  Receipt Date: 20051117
  Transmission Date: 20060501
  Serious: Yes (Hospitalization)
  Sender: FDA-Public Use
  Company Number: AE# 2005-MIBG-001

PATIENT
  Age: 35 Year
  Sex: Male

DRUGS (2)
  1. LOBENGUANE SULFATE I-131 INJECTION (MIBG I-131) [Suspect]
     Indication: SCAN ADRENAL GLAND
     Dosage: 512 (OR 521) MCL/INJECTON
     Dates: start: 20051116
  2. LUGOL [Concomitant]

REACTIONS (6)
  - CARDIO-RESPIRATORY ARREST [None]
  - DISORIENTATION [None]
  - LOSS OF CONSCIOUSNESS [None]
  - PHARMACEUTICAL PRODUCT COMPLAINT [None]
  - PROCEDURAL COMPLICATION [None]
  - VOMITING [None]
